FAERS Safety Report 6999496-0 (Version None)
Quarter: 2010Q3

REPORT INFORMATION
  Report Type: 
  Country: None (occurrence: None)
  Receive Date: 20100920
  Receipt Date: 20070615
  Transmission Date: 20110219
  Serious: Yes (Hospitalization)
  Sender: FDA-Public Use
  Company Number: US-ASTRAZENECA-2006UW11944

PATIENT
  Age: 583 Month
  Sex: Male
  Weight: 130.2 kg

DRUGS (8)
  1. SEROQUEL [Suspect]
     Route: 048
     Dates: start: 20010101
  2. SEROQUEL [Suspect]
     Dosage: 25 MG TWO AT NIGHT, 100 MG AT BEDTIME
     Route: 048
     Dates: start: 20021003
  3. NEURONTIN [Concomitant]
     Route: 048
     Dates: start: 20021003
  4. DESYREL [Concomitant]
     Dosage: 56 MG ONE TO TWO AT NIGHT
     Route: 048
     Dates: start: 20021003
  5. INSULIN [Concomitant]
     Dosage: EVERY DAY
     Dates: start: 20060731
  6. TOPROL-XL [Concomitant]
     Dates: start: 20040507
  7. LASIX [Concomitant]
     Dates: start: 20040507
  8. SPIRONOLACTONE [Concomitant]
     Dates: start: 20040507

REACTIONS (2)
  - DIABETES MELLITUS [None]
  - DIABETES MELLITUS INADEQUATE CONTROL [None]
